FAERS Safety Report 8520398 (Version 4)
Quarter: 2012Q4

REPORT INFORMATION
  Report Type: Report from Study
  Country: JP (occurrence: JP)
  Receive Date: 20120418
  Receipt Date: 20121130
  Transmission Date: 20130627
  Serious: Yes (Hospitalization)
  Sender: FDA-Public Use
  Company Number: JP-ABBOTT-12P-087-0926189-00

PATIENT
  Age: 57 Year
  Sex: Male
  Weight: 52 kg

DRUGS (6)
  1. HUMIRA [Suspect]
     Indication: BEHCET^S SYNDROME
     Dosage: Baseline
     Route: 058
     Dates: start: 20110204, end: 20110204
  2. HUMIRA [Suspect]
     Dosage: Induction:  Baseline
     Route: 058
     Dates: start: 20110219, end: 20110219
  3. HUMIRA [Suspect]
     Route: 058
     Dates: start: 20110301, end: 20120320
  4. HUMIRA [Suspect]
     Route: 058
     Dates: start: 20120918
  5. COLCHICINE [Concomitant]
     Indication: BEHCET^S SYNDROME
     Route: 051
     Dates: start: 20061219
  6. IMURAN [Concomitant]
     Indication: BEHCET^S SYNDROME
     Route: 048
     Dates: start: 20070502

REACTIONS (1)
  - Autoimmune thyroiditis [Recovered/Resolved]
